FAERS Safety Report 6527663-9 (Version None)
Quarter: 2010Q1

REPORT INFORMATION
  Report Type: 
  Country: None (occurrence: None)
  Receive Date: 20100105
  Receipt Date: 20091224
  Transmission Date: 20100710
  Serious: Yes (Hospitalization)
  Sender: FDA-Public Use
  Company Number: JP-SANOFI-AVENTIS-A01200909968

PATIENT
  Age: 52 Year
  Sex: Female
  Weight: 36 kg

DRUGS (7)
  1. ZOLPIDEM TARTRATE [Suspect]
     Indication: INSOMNIA
     Dosage: UNIT DOSE: 5 MG
     Route: 048
     Dates: start: 20090824, end: 20090914
  2. ALLEGRA [Suspect]
     Indication: DRUG USE FOR UNKNOWN INDICATION
     Route: 048
     Dates: start: 20090825, end: 20090914
  3. ZYRTEC [Suspect]
     Indication: DRUG RASH WITH EOSINOPHILIA AND SYSTEMIC SYMPTOMS
     Route: 048
     Dates: start: 20090827, end: 20090904
  4. ATARAX [Suspect]
     Indication: DRUG USE FOR UNKNOWN INDICATION
     Route: 048
     Dates: start: 20090823, end: 20090914
  5. FAMOTIDINE [Suspect]
     Indication: DRUG USE FOR UNKNOWN INDICATION
     Route: 065
     Dates: start: 20090823, end: 20090902
  6. RINDERON [Concomitant]
     Route: 065
     Dates: end: 20090915
  7. PREDNISOLONE [Concomitant]
     Route: 065
     Dates: end: 20090915

REACTIONS (1)
  - LIVER DISORDER [None]
